FAERS Safety Report 24243997 (Version 1)
Quarter: 2024Q3

REPORT INFORMATION
  Report Type: Spontaneous
  Country: US (occurrence: None)
  Receive Date: 20240823
  Receipt Date: 20240823
  Transmission Date: 20241017
  Serious: Yes (Hospitalization, Other)
  Sender: EMMAUS LIFE SCIENCES
  Company Number: US-ARIS GLOBAL-EMM202401-000054

PATIENT
  Age: 49 Year
  Sex: Male
  Weight: 89.993 kg

DRUGS (4)
  1. ENDARI [Suspect]
     Active Substance: GLUTAMINE
     Indication: Sickle cell disease
     Dosage: 15 G
     Route: 048
     Dates: start: 202209
  2. HYDROXYUREA [Concomitant]
     Active Substance: HYDROXYUREA
     Indication: Product used for unknown indication
     Dosage: 500 MG
     Route: 065
  3. FOLIC ACID [Concomitant]
     Active Substance: FOLIC ACID
     Indication: Product used for unknown indication
     Dosage: 1 MG
     Route: 065
  4. ADAKVEO [Concomitant]
     Active Substance: CRIZANLIZUMAB-TMCA
     Indication: Product used for unknown indication
     Dosage: 473 MG
     Route: 042

REACTIONS (1)
  - Sickle cell anaemia with crisis [Recovered/Resolved]

NARRATIVE: CASE EVENT DATE: 20240102
